FAERS Safety Report 10169506 (Version 2)
Quarter: 2014Q2

REPORT INFORMATION
  Report Type: Spontaneous
  Country: US (occurrence: US)
  Receive Date: 20140513
  Receipt Date: 20140616
  Transmission Date: 20141212
  Serious: Yes (Other)
  Sender: FDA-Public Use
  Company Number: US-TAKEDA-2014TUS003758

PATIENT
  Age: 63 Year
  Sex: Female
  Weight: 182 kg

DRUGS (5)
  1. ULORIC [Suspect]
     Indication: GOUT
     Dosage: 40 MG, QD
     Route: 048
     Dates: start: 20131223, end: 20140108
  2. PRADAXA [Suspect]
     Indication: ATRIAL FIBRILLATION
     Dosage: 150 MG, QD
     Route: 065
  3. NORVASC [Concomitant]
     Indication: HYPERTENSION
  4. SOTALOL [Concomitant]
  5. PREDNISONE [Concomitant]
     Indication: GOUT
     Dosage: PRN

REACTIONS (1)
  - Melaena [Recovered/Resolved]
